FAERS Safety Report 7542590-6 (Version None)
Quarter: 2011Q2

REPORT INFORMATION
  Report Type: 
  Country: None (occurrence: None)
  Receive Date: 20110613
  Receipt Date: 20110607
  Transmission Date: 20111010
  Serious: Yes (Other)
  Sender: FDA-Public Use
  Company Number: IE-ROCHE-777344

PATIENT
  Sex: Female
  Weight: 87.4 kg

DRUGS (10)
  1. LERCANIDIPINE [Concomitant]
     Route: 048
  2. ASPIRIN [Concomitant]
     Route: 048
  3. LIPITOR [Concomitant]
  4. RASILEZ [Concomitant]
     Route: 048
  5. MICARDIS [Concomitant]
     Route: 048
  6. QUININE SULFATE [Concomitant]
     Route: 048
  7. ZOLPIDEM TARTRATE [Concomitant]
  8. XANAX [Concomitant]
  9. ACTEMRA [Suspect]
     Route: 042
     Dates: start: 20101007, end: 20110510
  10. LEVOTHYROXINE SODIUM [Concomitant]
     Route: 048

REACTIONS (2)
  - DEPRESSION [None]
  - SUICIDAL IDEATION [None]
